FAERS Safety Report 8601081-1 (Version None)
Quarter: 2012Q3

REPORT INFORMATION
  Report Type: 
  Country: None (occurrence: None)
  Receive Date: 20120817
  Receipt Date: 20120807
  Transmission Date: 20120928
  Serious: Yes (Hospitalization, Other)
  Sender: FDA-Public Use
  Company Number: PHHY2012CA070886

PATIENT
  Sex: Female

DRUGS (2)
  1. ZIPRASIDONE HYDROCHLORIDE [Suspect]
  2. CLOZARIL [Suspect]
     Dates: start: 20091116, end: 20120807

REACTIONS (7)
  - AGITATION [None]
  - STRESS [None]
  - AGRANULOCYTOSIS [None]
  - WHITE BLOOD CELL COUNT DECREASED [None]
  - PSYCHIATRIC DECOMPENSATION [None]
  - LOGORRHOEA [None]
  - NEUTROPHIL COUNT DECREASED [None]
